FAERS Safety Report 14608366 (Version 1)
Quarter: 2018Q1

REPORT INFORMATION
  Report Type: Spontaneous
  Country: JP (occurrence: JP)
  Receive Date: 20180307
  Receipt Date: 20180307
  Transmission Date: 20180509
  Serious: Yes (Other)
  Sender: FDA-Public Use
  Company Number: JP-PFIZER INC-2018091647

PATIENT

DRUGS (1)
  1. SUTENT [Suspect]
     Active Substance: SUNITINIB MALATE
     Indication: RENAL CELL CARCINOMA
     Dosage: UNK, CYCLIC (2 WEEKS ON TREATMENT FOLLOWED BY 1 WEEK OFF)
     Route: 048

REACTIONS (2)
  - Bone marrow failure [Unknown]
  - Palmar-plantar erythrodysaesthesia syndrome [Recovered/Resolved]
